FAERS Safety Report 9649456 (Version 1)
Quarter: 2013Q4

REPORT INFORMATION
  Report Type: Spontaneous
  Country: US (occurrence: US)
  Receive Date: 20131028
  Receipt Date: 20131028
  Transmission Date: 20140711
  Serious: Yes (Other)
  Sender: FDA-Public Use
  Company Number: US-ROXANE LABORATORIES, INC.-2013-RO-01726RO

PATIENT
  Age: 31 Year
  Sex: Male
  Weight: 76 kg

DRUGS (11)
  1. RISPERIDONE [Suspect]
     Indication: ABNORMAL BEHAVIOUR
  2. RISPERIDONE [Suspect]
     Indication: AUTISM SPECTRUM DISORDER
  3. CHLORPROMAZINE [Suspect]
     Dosage: 600 MG
  4. CLOMIPRAMINE [Suspect]
     Indication: OBSESSIVE-COMPULSIVE DISORDER
  5. ATENOLOL [Suspect]
     Dosage: 50 MG
  6. HYDROCHLOROTHIAZIDE [Suspect]
     Dosage: 25 MG
  7. DIVALPROEX [Suspect]
     Dosage: 1250 MG
  8. DOCUSATE [Suspect]
     Dosage: 100 MG
  9. GLATIRAMER [Suspect]
     Dosage: 20 MG
  10. MECLIZINE [Suspect]
     Dosage: 37.5 MG
  11. MULTIVITAMIN [Suspect]

REACTIONS (1)
  - Pleurothotonus [Not Recovered/Not Resolved]
